FAERS Safety Report 21391468 (Version 1)
Quarter: 2022Q3

REPORT INFORMATION
  Report Type: Spontaneous
  Country: US (occurrence: US)
  Receive Date: 20220929
  Receipt Date: 20220929
  Transmission Date: 20221027
  Serious: Yes (Hospitalization)
  Sender: FDA-Public Use
  Company Number: US-IRONSHORE PHARMACEUTICALS INC. (IPA)-JOR-2022-000135

PATIENT
  Age: 18 Year
  Sex: Male

DRUGS (1)
  1. JORNAY PM EXTENDED-RELEASE [Suspect]
     Active Substance: METHYLPHENIDATE HYDROCHLORIDE
     Indication: Attention deficit hyperactivity disorder
     Dosage: 60 MILLIGRAM
     Route: 048

REACTIONS (4)
  - Catatonia [Unknown]
  - Educational problem [Unknown]
  - Somnolence [Unknown]
  - Mania [Unknown]
